FAERS Safety Report 4826357-5 (Version None)
Quarter: 2005Q4

REPORT INFORMATION
  Report Type: 
  Country: None (occurrence: None)
  Receive Date: 20051111
  Receipt Date: 20051012
  Transmission Date: 20060501
  Serious: Yes (Death)
  Sender: FDA-Public Use
  Company Number: US-ROCHE-421056

PATIENT
  Age: 79 Year
  Sex: Male

DRUGS (6)
  1. INTERFERON ALFA-2A [Suspect]
     Dosage: THREE TIMES A WEEK, EVERY OTHER DAY
     Route: 030
     Dates: start: 20050113
  2. COUMADIN [Concomitant]
     Route: 048
  3. ARICEPT [Concomitant]
     Route: 048
  4. LEXAPRO [Concomitant]
     Route: 048
  5. CARTIA XT [Concomitant]
     Route: 048
  6. COZAAR [Concomitant]
     Route: 048

REACTIONS (2)
  - CARDIAC DISORDER [None]
  - DIARRHOEA [None]
